FAERS Safety Report 23669330 (Version 1)
Quarter: 2024Q1

REPORT INFORMATION
  Report Type: Spontaneous
  Country: US (occurrence: US)
  Receive Date: 20240325
  Receipt Date: 20240325
  Transmission Date: 20240410
  Serious: No
  Sender: FDA-Public Use
  Company Number: US-JNJFOC-20240334401

PATIENT
  Sex: Female

DRUGS (2)
  1. TOPIRAMATE [Suspect]
     Active Substance: TOPIRAMATE
     Indication: Epilepsy
     Dosage: 200 MG IN THE MORNING AND 400 MG IN THE EVENING
     Route: 048
  2. DILANTIN [Concomitant]
     Active Substance: PHENYTOIN

REACTIONS (2)
  - Adverse event [Unknown]
  - Respiratory tract infection [Unknown]
